FAERS Safety Report 23849314 (Version 1)
Quarter: 2024Q2

REPORT INFORMATION
  Report Type: Spontaneous
  Country: GB (occurrence: GB)
  Receive Date: 20240513
  Receipt Date: 20240513
  Transmission Date: 20240716
  Serious: Yes (Disabling)
  Sender: FDA-Public Use
  Company Number: None

PATIENT
  Age: 55 Year
  Sex: Female
  Weight: 87 kg

DRUGS (7)
  1. ZOLPIDEM [Suspect]
     Active Substance: ZOLPIDEM TARTRATE
     Indication: Product used for unknown indication
     Dosage: UNK
     Route: 048
     Dates: start: 20240503
  2. ARIPIPRAZOLE [Concomitant]
     Active Substance: ARIPIPRAZOLE
     Dosage: UNK UNK, QD (OD)
     Route: 065
     Dates: start: 20190227
  3. CYCLIZINE [Concomitant]
     Active Substance: CYCLIZINE
     Indication: Nausea
     Dosage: UNK  TID  (TDS AS NEEDED FOR NAUSEA)
     Route: 065
     Dates: start: 20240501
  4. EPILIM [Concomitant]
     Active Substance: VALPROATE SODIUM
     Dosage: 1 DOSAGE FORM, QD (1 AT NIGHT (TOTAL 900MG))
     Route: 065
     Dates: start: 20170224
  5. LEVOTHYROXINE [Concomitant]
     Active Substance: LEVOTHYROXINE\LEVOTHYROXINE SODIUM
     Dosage: 1 DOSAGE FORM, QD (ONE TO BE TAKEN DAILY)
     Route: 065
     Dates: start: 20110707
  6. OLANZAPINE [Concomitant]
     Active Substance: OLANZAPINE
     Dosage: 1 DOSAGE FORM, QD (OD PRN AS NEEDED)
     Route: 065
     Dates: start: 20151202
  7. ZOLPIDEM [Concomitant]
     Active Substance: ZOLPIDEM TARTRATE
     Dosage: 1 DOSAGE FORM, QD (AKE ONE AT NIGHT PRN)
     Route: 065
     Dates: start: 20240502

REACTIONS (1)
  - Psychotic disorder [Recovered/Resolved]

NARRATIVE: CASE EVENT DATE: 20240503
